FAERS Safety Report 14922357 (Version 1)
Quarter: 2018Q2

REPORT INFORMATION
  Report Type: Spontaneous
  Country: US (occurrence: US)
  Receive Date: 20180502
  Receipt Date: 20180502
  Transmission Date: 20180711
  Serious: Yes (Other)
  Sender: FDA-Public Use
  Company Number: None

PATIENT
  Age: 24 Year
  Sex: Female
  Weight: 54.9 kg

DRUGS (2)
  1. CREAM FOR VAGINAL INFECTIONS [Concomitant]
  2. MIRENA [Suspect]
     Active Substance: LEVONORGESTREL
     Dosage: ?          OTHER FREQUENCY:3 YEARS;?
     Route: 067

REACTIONS (3)
  - Vaginal infection [None]
  - Vaginal odour [None]
  - Pain [None]

NARRATIVE: CASE EVENT DATE: 20150715
